FAERS Safety Report 8412334-4 (Version None)
Quarter: 2012Q2

REPORT INFORMATION
  Report Type: 
  Country: None (occurrence: None)
  Receive Date: 20120605
  Receipt Date: 20120515
  Transmission Date: 20120825
  Serious: No
  Sender: FDA-Public Use
  Company Number: US-AMGEN-USASP2012030573

PATIENT
  Age: 15 Year
  Sex: Female

DRUGS (1)
  1. ENBREL [Suspect]
     Indication: JUVENILE ARTHRITIS
     Dosage: 25 MG, 2 TIMES/WK
     Dates: start: 20120406, end: 20120511

REACTIONS (4)
  - INJECTION SITE PRURITUS [None]
  - INJECTION SITE WARMTH [None]
  - INJECTION SITE ERYTHEMA [None]
  - INJECTION SITE SWELLING [None]
